FAERS Safety Report 4768214-9 (Version None)
Quarter: 2005Q3

REPORT INFORMATION
  Report Type: 
  Country: None (occurrence: None)
  Receive Date: 20050912
  Receipt Date: 20050912
  Transmission Date: 20060218
  Serious: Yes (Hospitalization, Other)
  Sender: FDA-Public Use
  Company Number: None

PATIENT
  Sex: Female
  Weight: 57.42 kg

DRUGS (5)
  1. FLUOROURACIL [Suspect]
     Indication: ANAL CANCER
     Dates: start: 20050824, end: 20050827
  2. CISPLATIN [Suspect]
     Dates: start: 20050824
  3. RADIOTHERAPY [Suspect]
     Dates: start: 20050824
  4. LASIX [Concomitant]
  5. SANDOSTATIN [Concomitant]

REACTIONS (18)
  - ACTIVATED PARTIAL THROMBOPLASTIN TIME SHORTENED [None]
  - BLOOD CHLORIDE DECREASED [None]
  - BLOOD MAGNESIUM INCREASED [None]
  - BLOOD POTASSIUM DECREASED [None]
  - BLOOD UREA INCREASED [None]
  - CARBON DIOXIDE INCREASED [None]
  - CARDIAC TELEMETRY ABNORMAL [None]
  - CREATINE PHOSPHOKINASE DECREASED [None]
  - DIZZINESS [None]
  - EMPHYSEMA [None]
  - FAECAL INCONTINENCE [None]
  - FALL [None]
  - OCCULT BLOOD POSITIVE [None]
  - OXYGEN SATURATION DECREASED [None]
  - PROTHROMBIN TIME SHORTENED [None]
  - SINUS BRADYCARDIA [None]
  - SYNCOPE [None]
  - URINARY INCONTINENCE [None]
